FAERS Safety Report 16962524 (Version 1)
Quarter: 2019Q4

REPORT INFORMATION
  Report Type: Spontaneous
  Country: NL (occurrence: FR)
  Receive Date: 20191025
  Receipt Date: 20191025
  Transmission Date: 20200122
  Serious: Yes (Hospitalization)
  Sender: FDA-Public Use
  Company Number: FR-FRESENIUS KABI-FK201911774

PATIENT
  Age: 76 Year
  Sex: Female
  Weight: 59 kg

DRUGS (3)
  1. GEMCITABINE. [Suspect]
     Active Substance: GEMCITABINE
     Indication: NEOPLASM MALIGNANT
     Route: 042
     Dates: start: 201903, end: 201906
  2. SULFAMETHOXAZOLE/TRIMETHOPRIM [Suspect]
     Active Substance: SULFAMETHOXAZOLE\TRIMETHOPRIM
     Indication: PNEUMOCYSTIS JIROVECII PNEUMONIA
     Route: 046
     Dates: start: 20190618, end: 20190702
  3. DACARBAZINE. [Suspect]
     Active Substance: DACARBAZINE
     Indication: NEOPLASM MALIGNANT
     Route: 042
     Dates: start: 201903, end: 201906

REACTIONS (3)
  - Cardiac valve disease [Not Recovered/Not Resolved]
  - Cardiac fibrillation [Not Recovered/Not Resolved]
  - Ejection fraction [Not Recovered/Not Resolved]

NARRATIVE: CASE EVENT DATE: 20190724
